FAERS Safety Report 4391883-2 (Version None)
Quarter: 2004Q3

REPORT INFORMATION
  Report Type: 
  Country: None (occurrence: None)
  Receive Date: 20040702
  Receipt Date: 20040402
  Transmission Date: 20050211
  Serious: Yes (Hospitalization)
  Sender: FDA-Public Use
  Company Number: 2004UW06588

PATIENT
  Age: 54 Year
  Sex: Female
  Weight: 51.7101 kg

DRUGS (4)
  1. CRESTOR [Suspect]
     Indication: ATHEROSCLEROSIS
     Dosage: 10 MG PO
     Route: 048
     Dates: start: 20040101, end: 20040405
  2. PLAVIX [Concomitant]
  3. ASPIRIN [Concomitant]
  4. MOTRIN [Concomitant]

REACTIONS (9)
  - ASTHENIA [None]
  - BLOOD PRESSURE DECREASED [None]
  - CHEST PAIN [None]
  - DIZZINESS [None]
  - FATIGUE [None]
  - LOSS OF CONSCIOUSNESS [None]
  - MYALGIA [None]
  - VENTRICULAR EXTRASYSTOLES [None]
  - VISION BLURRED [None]
